FAERS Safety Report 25983116 (Version 1)
Quarter: 2025Q4

REPORT INFORMATION
  Report Type: Spontaneous
  Country: EU (occurrence: EU)
  Receive Date: 20251031
  Receipt Date: 20251031
  Transmission Date: 20260118
  Serious: Yes (Hospitalization, Other)
  Sender: BRISTOL MYERS SQUIBB
  Company Number: None

PATIENT
  Age: 77 Year
  Sex: Male

DRUGS (5)
  1. ELIQUIS [Suspect]
     Active Substance: APIXABAN
     Indication: Atrial fibrillation
     Dosage: 60 TABLETS
     Route: 048
     Dates: start: 20250730, end: 20251014
  2. PANCRELIPASE [Concomitant]
     Active Substance: PANCRELIPASE
     Indication: Product used for unknown indication
     Dosage: STRENGTH: 35,000 U, 100 CAPSULES
     Route: 048
     Dates: start: 20241022
  3. DEVIK [Concomitant]
     Indication: Product used for unknown indication
     Dosage: 1 X 10 ML BOTTLE
     Route: 048
     Dates: start: 20241022
  4. BISOPROLOL FUMARATE [Concomitant]
     Active Substance: BISOPROLOL FUMARATE
     Indication: Product used for unknown indication
     Dosage: 28 TABLETS
     Route: 048
     Dates: start: 20190318
  5. TAMSULOSINA KERN PHARMA [Concomitant]
     Indication: Product used for unknown indication
     Dosage: EXTENDED RELEASE TABLETS EFG, 30 TABLETS
     Route: 048
     Dates: start: 20241022

REACTIONS (2)
  - Encephalopathy [Recovering/Resolving]
  - Hyperammonaemia [Recovering/Resolving]

NARRATIVE: CASE EVENT DATE: 20250927
